FAERS Safety Report 5237041-0 (Version None)
Quarter: 2007Q1

REPORT INFORMATION
  Report Type: 
  Country: None (occurrence: None)
  Receive Date: 20070213
  Receipt Date: 20070201
  Transmission Date: 20070707
  Serious: Yes (Death)
  Sender: FDA-Public Use
  Company Number: NL-JNJFOC-20070200773

PATIENT
  Age: 31 Year
  Sex: Male

DRUGS (4)
  1. INFLIXIMAB [Suspect]
     Indication: CROHN'S DISEASE
     Dosage: 1 OR 2 DOSES TOTAL (STRENGTH AND FREQUENCY NOT SPECIFIED)
     Route: 042
  2. MERCAPTOPURINE [Concomitant]
  3. MESALAMINE [Concomitant]
  4. PREDNISONE [Concomitant]

REACTIONS (1)
  - T-CELL LYMPHOMA [None]
